FAERS Safety Report 5316214-2 (Version None)
Quarter: 2007Q2

REPORT INFORMATION
  Report Type: 
  Country: None (occurrence: None)
  Receive Date: 20070503
  Receipt Date: 20070425
  Transmission Date: 20071010
  Serious: Yes (Hospitalization, Other)
  Sender: FDA-Public Use
  Company Number: JP-ROXANE LABORATORIES, INC-2007-BP-05744RO

PATIENT
  Sex: Female

DRUGS (2)
  1. ZONISAMIDE [Suspect]
     Indication: CONVULSION PROPHYLAXIS
     Dates: start: 19991027, end: 20000310
  2. CORTICOSTEROIDS [Suspect]
     Indication: PROPHYLAXIS
     Dates: start: 19991201, end: 20000501

REACTIONS (8)
  - ACUTE GRAFT VERSUS HOST DISEASE IN SKIN [None]
  - ALOPECIA [None]
  - DRUG RASH WITH EOSINOPHILIA AND SYSTEMIC SYMPTOMS [None]
  - FATIGUE [None]
  - PANCYTOPENIA [None]
  - RAYNAUD'S PHENOMENON [None]
  - THYROID DISORDER [None]
  - VARICELLA [None]
